FAERS Safety Report 14813092 (Version 1)
Quarter: 2018Q2

REPORT INFORMATION
  Report Type: Spontaneous
  Country: CA (occurrence: CA)
  Receive Date: 20180426
  Receipt Date: 20180426
  Transmission Date: 20180711
  Serious: Yes (Other)
  Sender: FDA-Public Use
  Company Number: CA-TEVA-2018-CA-883859

PATIENT
  Sex: Male

DRUGS (2)
  1. PREDNISONE. [Suspect]
     Active Substance: PREDNISONE
     Indication: CROHN^S DISEASE
     Dosage: 40 MILLIGRAM DAILY; STRENGTH: 20MG, 2X20MG OD TAPERED DOWN DOSE
     Route: 065
     Dates: end: 2015
  2. ASACOL [Suspect]
     Active Substance: MESALAMINE
     Indication: CROHN^S DISEASE
     Dosage: 4 DOSAGE FORMS DAILY; 4 PILLS OD
     Route: 065
     Dates: end: 2015

REACTIONS (2)
  - Ileal ulcer [Unknown]
  - Colitis [Unknown]
